FAERS Safety Report 5346641-9 (Version None)
Quarter: 2007Q2

REPORT INFORMATION
  Report Type: 
  Country: None (occurrence: None)
  Receive Date: 20070605
  Receipt Date: 20070507
  Transmission Date: 20071010
  Serious: Yes (Other)
  Sender: FDA-Public Use
  Company Number: PT-PFIZER INC-2007038063

PATIENT
  Sex: Female
  Weight: 130 kg

DRUGS (11)
  1. LYRICA [Suspect]
     Indication: NEURALGIA
     Route: 048
  2. TRAMADOL HYDROCHLORIDE AND ACETAMINOPHEN [Interacting]
  3. BUPRENORPHINE HCL [Concomitant]
  4. RISIDON [Concomitant]
     Route: 048
  5. SEDOXIL [Concomitant]
     Route: 048
  6. FOLICIL [Concomitant]
     Route: 048
  7. ZOLOFT [Concomitant]
     Route: 048
  8. VALIUM [Concomitant]
     Route: 048
  9. RELMUS [Concomitant]
     Route: 048
  10. ACETAMINOPHEN [Concomitant]
     Route: 048
  11. METAMIZOLE [Concomitant]
     Route: 048

REACTIONS (4)
  - DRUG INTERACTION [None]
  - HALLUCINATION [None]
  - INCOHERENT [None]
  - NIGHTMARE [None]
